FAERS Safety Report 14172649 (Version 1)
Quarter: 2017Q4

REPORT INFORMATION
  Report Type: Spontaneous
  Country: GB (occurrence: GB)
  Receive Date: 20171109
  Receipt Date: 20171109
  Transmission Date: 20180321
  Serious: Yes (Other)
  Sender: FDA-Public Use
  Company Number: GB-CONCORDIA PHARMACEUTICALS INC.-GSH201511-015460

PATIENT
  Sex: Female

DRUGS (4)
  1. LYRICA [Concomitant]
     Active Substance: PREGABALIN
     Indication: NEURALGIA
  2. DIPIPANONE AND CYCLIZINE TABLET [Suspect]
     Active Substance: CYCLIZINE HYDROCHLORIDE\DIPIPANONE HYDROCHLORIDE
  3. DIPIPANONE AND CYCLIZINE TABLET [Suspect]
     Active Substance: CYCLIZINE HYDROCHLORIDE\DIPIPANONE HYDROCHLORIDE
     Indication: PAIN
  4. PREDNISOLONE. [Suspect]
     Active Substance: PREDNISOLONE
     Indication: INFLAMMATION

REACTIONS (7)
  - Pain [Unknown]
  - Off label use [Unknown]
  - Osteoporosis [Unknown]
  - Spinal compression fracture [Unknown]
  - Intentional product misuse [Unknown]
  - Spinal fracture [Unknown]
  - Bone disorder [Unknown]
